FAERS Safety Report 5732375-5 (Version None)
Quarter: 2008Q2

REPORT INFORMATION
  Report Type: 
  Country: None (occurrence: None)
  Receive Date: 20080508
  Receipt Date: 20080428
  Transmission Date: 20081010
  Serious: Yes (Other)
  Sender: FDA-Public Use
  Company Number: BR-PFIZER INC-2008037932

PATIENT
  Sex: Male
  Weight: 80 kg

DRUGS (6)
  1. LIPITOR [Suspect]
     Indication: BLOOD CHOLESTEROL INCREASED
     Route: 048
  2. BENERVA [Concomitant]
  3. AMARYL [Concomitant]
  4. GLUCOBAY [Concomitant]
  5. SOMALGIN [Concomitant]
  6. LOSARTAN POTASSIUM [Concomitant]

REACTIONS (2)
  - CARDIAC OPERATION [None]
  - COUGH [None]
